FAERS Safety Report 22296456 (Version 1)
Quarter: 2023Q2

REPORT INFORMATION
  Report Type: Report from Study
  Country: EG (occurrence: None)
  Receive Date: 20230508
  Receipt Date: 20230508
  Transmission Date: 20230721
  Serious: Yes (Other)
  Sender: FDA-Public Use
  Company Number: EG-Merck Healthcare KGaA-9399707

PATIENT
  Age: 28 Year
  Sex: Male

DRUGS (1)
  1. MAVENCLAD [Suspect]
     Active Substance: CLADRIBINE
     Indication: Multiple sclerosis
     Dosage: THERAPY
     Route: 048
     Dates: start: 20230308

REACTIONS (4)
  - Viral infection [Unknown]
  - Myocarditis [Unknown]
  - Pericarditis [Unknown]
  - Neutropenia [Unknown]

NARRATIVE: CASE EVENT DATE: 20230413
